FAERS Safety Report 6097905-5 (Version None)
Quarter: 2009Q1

REPORT INFORMATION
  Report Type: 
  Country: None (occurrence: None)
  Receive Date: 20090227
  Receipt Date: 20090224
  Transmission Date: 20090719
  Serious: Yes (Death, Other)
  Sender: FDA-Public Use
  Company Number: PHHY2008MY31987

PATIENT
  Age: 33 Year
  Sex: Female

DRUGS (3)
  1. CLOZAPINE [Suspect]
     Indication: SCHIZOPHRENIA
     Dosage: 25 MG, QD
  2. CLOZAPINE [Suspect]
     Dosage: 400 MG, QHS
     Route: 048
  3. AMITRIPTYLINE [Suspect]
     Indication: SALIVARY HYPERSECRETION
     Dosage: 25 MG, QHS
     Route: 048

REACTIONS (8)
  - ABDOMINAL PAIN [None]
  - CONSTIPATION [None]
  - DIARRHOEA [None]
  - GASTROINTESTINAL SOUNDS ABNORMAL [None]
  - ILEUS PARALYTIC [None]
  - MEGACOLON [None]
  - PAIN [None]
  - SYNCOPE [None]
